FAERS Safety Report 7323862-7 (Version None)
Quarter: 2011Q1

REPORT INFORMATION
  Report Type: 
  Country: None (occurrence: None)
  Receive Date: 20110301
  Receipt Date: 20110225
  Transmission Date: 20110831
  Serious: Yes (Other)
  Sender: FDA-Public Use
  Company Number: A0915404A

PATIENT
  Age: 68 Year
  Sex: Female

DRUGS (2)
  1. UNKNOWN [Concomitant]
  2. PROMACTA [Suspect]
     Indication: IDIOPATHIC THROMBOCYTOPENIC PURPURA
     Dosage: 25MG PER DAY
     Route: 048
     Dates: start: 20091001

REACTIONS (2)
  - PLATELET COUNT INCREASED [None]
  - NEUROPATHY PERIPHERAL [None]
